FAERS Safety Report 15745742 (Version 1)
Quarter: 2018Q4

REPORT INFORMATION
  Report Type: Spontaneous
  Country: NL (occurrence: NL)
  Receive Date: 20181220
  Receipt Date: 20181220
  Transmission Date: 20190205
  Serious: Yes (Other)
  Sender: FDA-Public Use
  Company Number: PHHY2018NL186456

PATIENT
  Age: 69 Year
  Sex: Female

DRUGS (3)
  1. PAZOPANIB [Suspect]
     Active Substance: PAZOPANIB
     Dosage: 200 MG, QD
     Route: 065
  2. PAZOPANIB [Suspect]
     Active Substance: PAZOPANIB
     Indication: LEIOMYOSARCOMA METASTATIC
     Dosage: 800 MG, QD
     Route: 065
  3. PAZOPANIB [Suspect]
     Active Substance: PAZOPANIB
     Dosage: 600 MG, QD
     Route: 065

REACTIONS (11)
  - Leiomyosarcoma metastatic [Unknown]
  - Malignant neoplasm progression [Unknown]
  - Prescribed underdose [Unknown]
  - Diarrhoea [Unknown]
  - Hypothyroidism [Unknown]
  - Hypertension [Unknown]
  - Nausea [Unknown]
  - Syncope [Unknown]
  - Liver disorder [Unknown]
  - Fatigue [Unknown]
  - Vomiting [Unknown]
